FAERS Safety Report 16719732 (Version 1)
Quarter: 2019Q3

REPORT INFORMATION
  Report Type: Spontaneous
  Country: US (occurrence: US)
  Receive Date: 20190820
  Receipt Date: 20190820
  Transmission Date: 20191005
  Serious: No
  Sender: FDA-Public Use
  Company Number: US-SCIEGEN PHARMACEUTICALS INC-2019SCISPO00240

PATIENT

DRUGS (5)
  1. PEPTO-BISMOL [Interacting]
     Active Substance: BISMUTH SUBSALICYLATE
  2. CARVEDILOL. [Concomitant]
     Active Substance: CARVEDILOL
  3. ALLOPURINOL. [Concomitant]
     Active Substance: ALLOPURINOL
  4. TUMS [Interacting]
     Active Substance: CALCIUM CARBONATE
  5. BUPROPION HYDROCHLORIDE. [Suspect]
     Active Substance: BUPROPION HYDROCHLORIDE

REACTIONS (4)
  - Hyperhidrosis [Unknown]
  - Nausea [Unknown]
  - Dizziness [Unknown]
  - Erectile dysfunction [Unknown]

NARRATIVE: CASE EVENT DATE: 20190804
